FAERS Safety Report 10031984 (Version 1)
Quarter: 2014Q1

REPORT INFORMATION
  Report Type: Spontaneous
  Country: AU (occurrence: AU)
  Receive Date: 20140324
  Receipt Date: 20140324
  Transmission Date: 20141002
  Serious: Yes (Hospitalization)
  Sender: FDA-Public Use
  Company Number: AU-PFIZER INC-2014079165

PATIENT
  Age: 71 Year
  Sex: Female

DRUGS (2)
  1. ATORVASTATIN CALCIUM [Suspect]
     Dosage: 40 MG, 1X/DAY
     Route: 048
  2. ERYTHROMYCIN [Suspect]
     Dosage: 400 MG, 3X/DAY
     Route: 048
     Dates: start: 20131003, end: 20131010

REACTIONS (3)
  - Myopathy [Recovering/Resolving]
  - Blood creatine phosphokinase increased [Unknown]
  - Blood creatinine increased [Unknown]
